FAERS Safety Report 8710892 (Version 3)
Quarter: 2012Q4

REPORT INFORMATION
  Report Type: Report from Study
  Country: AU (occurrence: AU)
  Receive Date: 20120807
  Receipt Date: 20121018
  Transmission Date: 20130627
  Serious: Yes (Hospitalization, Other)
  Sender: FDA-Public Use
  Company Number: AU-BRISTOL-MYERS SQUIBB COMPANY-16688509

PATIENT
  Age: 70 Year
  Sex: Female
  Weight: 100 kg

DRUGS (17)
  1. ORENCIA [Suspect]
     Indication: RHEUMATOID ARTHRITIS
     Dosage: Restart on 16May2012.
     Route: 042
     Dates: start: 20111221
  2. METHOTREXATE [Concomitant]
     Route: 048
  3. FOLIC ACID [Concomitant]
     Route: 048
  4. PREDNISOLONE [Concomitant]
  5. ASPIRIN [Concomitant]
     Route: 048
  6. METFORMIN [Concomitant]
  7. HUMALOG [Concomitant]
     Dosage: 1 DF-50 units mane, 20 units nocte
  8. ACTONEL [Concomitant]
  9. CALCIUM [Concomitant]
     Dosage: 400 IU
     Route: 048
  10. MEGAFOL [Concomitant]
  11. MELOXICAM [Concomitant]
  12. FUROSEMIDE [Concomitant]
     Route: 048
  13. ATENOLOL [Concomitant]
  14. PREDNISONE [Concomitant]
  15. NEXIUM [Concomitant]
  16. LIPITOR [Concomitant]
     Route: 048
  17. DIAZEPAM [Concomitant]
     Route: 048

REACTIONS (5)
  - Gastrointestinal disorder [Unknown]
  - Anaemia [Unknown]
  - Influenza like illness [Recovering/Resolving]
  - Mouth ulceration [Recovering/Resolving]
  - Fatigue [Unknown]
